FAERS Safety Report 6540030-7 (Version None)
Quarter: 2010Q1

REPORT INFORMATION
  Report Type: 
  Country: None (occurrence: None)
  Receive Date: 20100111
  Receipt Date: 20091221
  Transmission Date: 20100710
  Serious: Yes (Other)
  Sender: FDA-Public Use
  Company Number: AEUSA200900337

PATIENT
  Age: 75 Year
  Sex: Female

DRUGS (1)
  1. IMMUNE GLOBULIN INTRAVENOUS (HUMAN) [Suspect]
     Indication: DEMYELINATING POLYNEUROPATHY
     Dosage: 0.4 GM/KG;QM;IV
     Route: 042

REACTIONS (2)
  - BLINDNESS [None]
  - RETINAL INFARCTION [None]
